FAERS Safety Report 9109648 (Version 1)
Quarter: 2013Q1

REPORT INFORMATION
  Report Type: Spontaneous
  Country: US (occurrence: US)
  Receive Date: 20130222
  Receipt Date: 20130222
  Transmission Date: 20140127
  Serious: No
  Sender: FDA-Public Use
  Company Number: US-ASTRAZENECA-2013SE05092

PATIENT
  Age: 61 Year
  Sex: Male
  Weight: 95.3 kg

DRUGS (2)
  1. TOPROL XL [Suspect]
     Dosage: GENERIC
     Route: 048
  2. TOPROL XL [Suspect]
     Route: 048

REACTIONS (1)
  - Glycosylated haemoglobin increased [Unknown]
